FAERS Safety Report 6756975-9 (Version None)
Quarter: 2010Q2

REPORT INFORMATION
  Report Type: 
  Country: None (occurrence: None)
  Receive Date: 20100603
  Receipt Date: 20100603
  Transmission Date: 20101027
  Serious: Yes (Hospitalization, Other)
  Sender: FDA-Public Use
  Company Number: None

PATIENT
  Age: 54 Year
  Sex: Male
  Weight: 104.3273 kg

DRUGS (1)
  1. POLYETHYLENE GLYCOL [Suspect]

REACTIONS (6)
  - DRUG HYPERSENSITIVITY [None]
  - FLUSHING [None]
  - OROPHARYNGEAL PAIN [None]
  - PRURITUS [None]
  - SYNCOPE [None]
  - URTICARIA [None]
